FAERS Safety Report 8406483 (Version 3)
Quarter: 2013Q1

REPORT INFORMATION
  Report Type: Spontaneous
  Country: US (occurrence: US)
  Receive Date: 20120215
  Receipt Date: 20130311
  Transmission Date: 20140127
  Serious: Yes (Disabling, Other)
  Sender: FDA-Public Use
  Company Number: US-PFIZER INC-2012038495

PATIENT
  Sex: Male

DRUGS (6)
  1. DETROL LA [Suspect]
     Dosage: 4 MG, 1X/DAY
     Route: 048
  2. ZESTRIL [Concomitant]
     Dosage: UNK
  3. IMDUR [Concomitant]
     Dosage: UNK
  4. FLOMAX [Concomitant]
     Dosage: UNK
  5. MOBIC [Concomitant]
     Dosage: UNK
  6. NEXIUM [Concomitant]
     Dosage: UNK

REACTIONS (2)
  - Arthropathy [Unknown]
  - Spinal disorder [Unknown]
